FAERS Safety Report 6719326-1 (Version None)
Quarter: 2010Q2

REPORT INFORMATION
  Report Type: 
  Country: None (occurrence: None)
  Receive Date: 20100511
  Receipt Date: 20100504
  Transmission Date: 20101027
  Serious: Yes (Hospitalization)
  Sender: FDA-Public Use
  Company Number: PHHO2010US02633

PATIENT
  Sex: Male
  Weight: 103.9 kg

DRUGS (2)
  1. CERTICAN [Suspect]
     Indication: LIVER TRANSPLANT
     Dosage: 2 MG
     Route: 048
     Dates: start: 20091112
  2. TACROLIMUS [Suspect]
     Indication: LIVER TRANSPLANT
     Dosage: 3 MG
     Route: 048
     Dates: start: 20091009

REACTIONS (8)
  - BILE DUCT STENT INSERTION [None]
  - CHOLESTASIS [None]
  - CONCOMITANT DISEASE PROGRESSION [None]
  - HEPATIC ENZYME INCREASED [None]
  - HEPATIC NECROSIS [None]
  - HEPATITIS C [None]
  - JAUNDICE CHOLESTATIC [None]
  - STENT REMOVAL [None]
